FAERS Safety Report 9602244 (Version 1)
Quarter: 2013Q4

REPORT INFORMATION
  Report Type: Spontaneous
  Country: JP (occurrence: None)
  Receive Date: 20131003
  Receipt Date: 20131003
  Transmission Date: 20140711
  Serious: Yes (Other)
  Sender: FDA-Public Use
  Company Number: SYM-2013-11119

PATIENT
  Age: 71 Year
  Sex: Male

DRUGS (3)
  1. FLUOROURACIL [Suspect]
     Indication: COLORECTAL CANCER
     Route: 040
  2. OXALIPLATIN [Suspect]
     Indication: COLORECTAL CANCER
     Route: 042
  3. LEUCOVORIN (FOLINIC ACID) (FOLINIC ACID) [Concomitant]

REACTIONS (1)
  - Hypothyroidism [None]
